FAERS Safety Report 10727850 (Version 2)
Quarter: 2015Q4

REPORT INFORMATION
  Report Type: Report from Study
  Country: JP (occurrence: JP)
  Receive Date: 20150121
  Receipt Date: 20151214
  Transmission Date: 20160304
  Serious: Yes (Life-Threatening, Hospitalization)
  Sender: FDA-Public Use
  Company Number: JP-PFIZER INC-2014357583

PATIENT
  Age: 84 Year
  Sex: Male
  Weight: 55 kg

DRUGS (4)
  1. XALKORI [Suspect]
     Active Substance: CRIZOTINIB
     Dosage: 250 MG, 2X/DAY
     Route: 048
     Dates: start: 20140925, end: 20141222
  2. AMARYL [Concomitant]
     Active Substance: GLIMEPIRIDE
     Dosage: 0.5 MG, 1X/DAY
     Route: 048
  3. SENNOSIDES. [Concomitant]
     Active Substance: SENNOSIDES
     Dosage: 24 MG, AS NEEDED
     Route: 048
     Dates: start: 20140906
  4. XALKORI [Suspect]
     Active Substance: CRIZOTINIB
     Indication: NON-SMALL CELL LUNG CANCER
     Dosage: 200 MG, 2X/DAY
     Route: 048
     Dates: start: 20140826, end: 20140924

REACTIONS (1)
  - Lung disorder [Recovering/Resolving]

NARRATIVE: CASE EVENT DATE: 20141222
